FAERS Safety Report 20082971 (Version 1)
Quarter: 2021Q4

REPORT INFORMATION
  Report Type: Spontaneous
  Country: DE (occurrence: DE)
  Receive Date: 20211117
  Receipt Date: 20211117
  Transmission Date: 20220303
  Serious: Yes (Hospitalization)
  Sender: FDA-Public Use
  Company Number: DE-ADRED-07152-02

PATIENT
  Age: 69 Year
  Sex: Female
  Weight: 93 kg

DRUGS (16)
  1. PEGFILGRASTIM [Suspect]
     Active Substance: PEGFILGRASTIM
     Indication: Product used for unknown indication
     Dosage: UNK (SCHEMA)
  2. NEBIVOLOL [Concomitant]
     Active Substance: NEBIVOLOL
     Dosage: 2.5 MILLIGRAM, BID (2.5 MG, 1-0-1-0)
  3. TORSEMIDE [Concomitant]
     Active Substance: TORSEMIDE
     Dosage: 10 MILLIGRAM, BID (10 MG, 2-0-0-0)
  4. LEVOTHYROXINE SODIUM [Concomitant]
     Active Substance: LEVOTHYROXINE SODIUM
     Dosage: 50 MICROGRAM, QD (50 ?G, 1-0-0-0)
  5. INSULIN GLARGINE [Concomitant]
     Active Substance: INSULIN GLARGINE
     Dosage: UNK (SCHEMA)
  6. VALACYCLOVIR HYDROCHLORIDE [Concomitant]
     Active Substance: VALACYCLOVIR HYDROCHLORIDE
     Dosage: 1 GRAM, BID (1 G, 1-0-1-0)
  7. VENETOCLAX [Concomitant]
     Active Substance: VENETOCLAX
     Dosage: 100 MILLIGRAM, QD (100 MG, 0-1-0-0)
  8. AMPHOTERICIN B [Concomitant]
     Active Substance: AMPHOTERICIN B
     Dosage: UNK UNK, QID (1-1-1-1)
  9. PREDNISOLON                        /00016201/ [Concomitant]
     Dosage: 10 MILLIGRAM, QD (10 MG, 1-0-0-0)
  10. PANTOPRAZOLE [Concomitant]
     Active Substance: PANTOPRAZOLE
     Dosage: 40 MILLIGRAM, QD (40 MG, 1-0-0-0)
  11. SPIRONOLACTONE [Concomitant]
     Active Substance: SPIRONOLACTONE
     Dosage: 25 MILLIGRAM, QD (25 MG, 1-0-0-0)
  12. ATORVASTATIN [Concomitant]
     Active Substance: ATORVASTATIN
     Dosage: 40 MILLIGRAM, QD (40 MG, 0-0-1-0)
  13. INSULIN LISPRO [Concomitant]
     Active Substance: INSULIN LISPRO
     Dosage: UNK (SCHEMA)
  14. CHOLECALCIFEROL [Concomitant]
     Active Substance: CHOLECALCIFEROL
     Dosage: 1000 INTERNATIONAL UNIT, QD (1000 IE, 1-0-0-0)
  15. FOLIC ACID [Concomitant]
     Active Substance: FOLIC ACID
     Dosage: 5 MILLIGRAM, QD (5 MG, 1-0-0-0)
  16. DEFERASIROX [Concomitant]
     Active Substance: DEFERASIROX
     Dosage: 360 MILLIGRAM, BID (360 MG, 1-0-1-0)

REACTIONS (15)
  - Tachycardia [Recovering/Resolving]
  - Renal impairment [Recovering/Resolving]
  - Condition aggravated [Recovering/Resolving]
  - Vomiting [Recovering/Resolving]
  - Abdominal pain [Recovering/Resolving]
  - Systemic infection [Recovering/Resolving]
  - Dyspnoea [Recovering/Resolving]
  - Anaemia [Recovering/Resolving]
  - Weight increased [Recovering/Resolving]
  - Sepsis [Recovering/Resolving]
  - Abdominal distension [Recovering/Resolving]
  - Hypotension [Recovering/Resolving]
  - Pyrexia [Recovering/Resolving]
  - Dysuria [Recovering/Resolving]
  - General physical health deterioration [Recovering/Resolving]
